FAERS Safety Report 5542025-9 (Version None)
Quarter: 2007Q4

REPORT INFORMATION
  Report Type: 
  Country: None (occurrence: None)
  Receive Date: 20071210
  Receipt Date: 20071129
  Transmission Date: 20080405
  Serious: Yes (Disabling)
  Sender: FDA-Public Use
  Company Number: CN-ASTRAZENECA-2007AP05474

PATIENT
  Age: 55 Year
  Sex: Male

DRUGS (1)
  1. IRESSA [Suspect]
     Indication: LUNG NEOPLASM MALIGNANT
     Route: 048
     Dates: start: 20070402

REACTIONS (3)
  - BLINDNESS [None]
  - RETINAL DETACHMENT [None]
  - VISUAL ACUITY REDUCED [None]
